FAERS Safety Report 17078021 (Version 3)
Quarter: 2020Q2

REPORT INFORMATION
  Report Type: Spontaneous
  Country: CA (occurrence: CA)
  Receive Date: 20191126
  Receipt Date: 20200516
  Transmission Date: 20200713
  Serious: Yes (Other)
  Sender: FDA-Public Use
  Company Number: CA-TEVA-2019-CA-1142765

PATIENT
  Age: 71 Year
  Sex: Male

DRUGS (1)
  1. PREDNISONE. [Suspect]
     Active Substance: PREDNISONE
     Dosage: 50 MILLIGRAM DAILY;
     Route: 048

REACTIONS (2)
  - Cryptococcosis [Recovered/Resolved]
  - Disseminated cryptococcosis [Recovered/Resolved]
